FAERS Safety Report 14582387 (Version 1)
Quarter: 2018Q1

REPORT INFORMATION
  Report Type: Other
  Country: RU (occurrence: RU)
  Receive Date: 20180228
  Receipt Date: 20180228
  Transmission Date: 20180509
  Serious: Yes (Hospitalization, Other)
  Sender: FDA-Public Use
  Company Number: RU-ACTELION-A-CH2018-168176

PATIENT
  Age: 39 Year
  Sex: Female

DRUGS (6)
  1. SPIRONOLACTONE. [Concomitant]
     Active Substance: SPIRONOLACTONE
     Dosage: 25 MG, QD
  2. BOSENTAN. [Suspect]
     Active Substance: BOSENTAN
     Indication: PULMONARY ARTERIAL HYPERTENSION
     Dosage: 250 MG, QD
     Route: 048
     Dates: start: 201512
  3. BOSENTAN. [Suspect]
     Active Substance: BOSENTAN
     Dosage: 125 MG, QD
     Route: 048
  4. NOREPINEPHRINE. [Concomitant]
     Active Substance: NOREPINEPHRINE
  5. TORASEMIDE [Concomitant]
     Active Substance: TORSEMIDE
     Dosage: 2.5 MG, 2 TIMES/WEEK
  6. OPSUMIT [Suspect]
     Active Substance: MACITENTAN
     Indication: PULMONARY ARTERIAL HYPERTENSION
     Dosage: 10 MG, QD
     Route: 048

REACTIONS (9)
  - Treatment failure [Unknown]
  - Polymenorrhoea [Recovered/Resolved]
  - Walking distance test abnormal [Recovered/Resolved]
  - Uterine haemorrhage [Recovered/Resolved]
  - Iron deficiency [Recovered/Resolved]
  - Uterine leiomyoma [Recovered/Resolved]
  - Myomectomy [Unknown]
  - Menorrhagia [Recovered/Resolved]
  - Pulmonary arterial pressure abnormal [Unknown]

NARRATIVE: CASE EVENT DATE: 2015
